FAERS Safety Report 9175052 (Version 2)
Quarter: 2013Q2

REPORT INFORMATION
  Report Type: Report from Study
  Country: DE (occurrence: DE)
  Receive Date: 20130320
  Receipt Date: 20130502
  Transmission Date: 20140414
  Serious: Yes (Hospitalization)
  Sender: FDA-Public Use
  Company Number: DE-UCBSA-080977

PATIENT
  Age: 52 Year
  Sex: Female

DRUGS (6)
  1. VIMPAT [Suspect]
     Indication: EPILEPSY
     Dosage: DAILY DOSE: 50 MG
     Dates: start: 20090626, end: 2009
  2. VIMPAT [Suspect]
     Indication: EPILEPSY
     Dosage: DAILY DOSE 400 MG
     Dates: start: 2009
  3. TOPIRAMATE [Concomitant]
     Indication: EPILEPSY
     Dosage: DAILY DOSE: 200 MG
     Dates: end: 2009
  4. PREGABALIN [Concomitant]
     Indication: EPILEPSY
     Dosage: 150 MG
     Dates: end: 2009
  5. OXCARBAZEPINE [Concomitant]
     Indication: EPILEPSY
     Dosage: 2100 MG
     Dates: end: 2009
  6. OXCARBAZEPINE [Concomitant]
     Indication: EPILEPSY
     Dosage: DOSE REDUCTION TO 1200 MG/DAY
     Dates: start: 2009

REACTIONS (1)
  - Convulsion [Unknown]
